FAERS Safety Report 13148632 (Version 4)
Quarter: 2017Q1

REPORT INFORMATION
  Report Type: Spontaneous
  Country: US (occurrence: US)
  Receive Date: 20170125
  Receipt Date: 20170331
  Transmission Date: 20170428
  Serious: No
  Sender: FDA-Public Use
  Company Number: US-PFIZER INC-2017029722

PATIENT
  Age: 82 Year
  Sex: Female

DRUGS (6)
  1. LETROZOLE. [Concomitant]
     Active Substance: LETROZOLE
     Dosage: 2.5 MG, 1X/DAY
     Route: 048
  2. IBRANCE [Suspect]
     Active Substance: PALBOCICLIB
     Dosage: UNK
  3. XGEVA [Concomitant]
     Active Substance: DENOSUMAB
     Dosage: UNK, MONTHLY (ONCE A MONTH, IN THE UPPER ARM)
     Dates: start: 20160907
  4. PROLIA [Concomitant]
     Active Substance: DENOSUMAB
     Dosage: UNK
  5. IBRANCE [Suspect]
     Active Substance: PALBOCICLIB
     Dosage: 100 MG, CYCLIC (FOR 21 DAYS AND STOPS IT FOR 7 DAYS)
     Dates: start: 20170112
  6. IBRANCE [Suspect]
     Active Substance: PALBOCICLIB
     Indication: ADRENAL GLAND CANCER
     Dosage: 125 MG, UNK
     Dates: start: 20170105

REACTIONS (3)
  - White blood cell count decreased [Recovering/Resolving]
  - Full blood count decreased [Unknown]
  - Product use issue [Unknown]

NARRATIVE: CASE EVENT DATE: 20170105
